FAERS Safety Report 6007328-2 (Version None)
Quarter: 2008Q4

REPORT INFORMATION
  Report Type: 
  Country: None (occurrence: None)
  Receive Date: 20081217
  Receipt Date: 20080310
  Transmission Date: 20090506
  Serious: No
  Sender: FDA-Public Use
  Company Number: US-ASTRAZENECA-2008UW04845

PATIENT
  Age: 73 Year
  Sex: Female
  Weight: 59 kg

DRUGS (5)
  1. CRESTOR [Suspect]
     Indication: BLOOD CHOLESTEROL INCREASED
     Route: 048
  2. SYNTHROID [Concomitant]
  3. CYTOMEL [Concomitant]
  4. ACTONEL [Concomitant]
  5. LEXAPRO [Concomitant]

REACTIONS (2)
  - INFLUENZA [None]
  - OROPHARYNGEAL PAIN [None]
